FAERS Safety Report 9983297 (Version 2)
Quarter: 2014Q2

REPORT INFORMATION
  Report Type: Spontaneous
  Country: FR (occurrence: FR)
  Receive Date: 20140307
  Receipt Date: 20140410
  Transmission Date: 20141212
  Serious: Yes (Other)
  Sender: FDA-Public Use
  Company Number: FR-SA-2014SA023369

PATIENT
  Age: 61 Year
  Sex: Male

DRUGS (2)
  1. STILNOX [Suspect]
     Indication: PRODUCT USED FOR UNKNOWN INDICATION
     Dosage: HALF OR 1 TABLET DAILY AS NEEDED
     Route: 048
     Dates: start: 2012, end: 2014
  2. STILNOX [Suspect]
     Indication: PRODUCT USED FOR UNKNOWN INDICATION
     Route: 048
     Dates: start: 2014, end: 2014

REACTIONS (1)
  - Sleep apnoea syndrome [Unknown]
